FAERS Safety Report 8383665 (Version 2)
Quarter: 2014Q2

REPORT INFORMATION
  Report Type: Report from Study
  Country: US (occurrence: US)
  Receive Date: 20120201
  Receipt Date: 20140611
  Transmission Date: 20141212
  Serious: Yes (Hospitalization)
  Sender: FDA-Public Use
  Company Number: PHEH2012US001247

PATIENT
  Age: 56 Year
  Sex: Male
  Weight: 82.99 kg

DRUGS (27)
  1. GILENYA [Suspect]
     Indication: MULTIPLE SCLEROSIS
     Dosage: 0.5 MG, QD
     Route: 048
     Dates: start: 20111209
  2. GILENYA [Suspect]
     Dosage: 0.5 MG, QD
     Route: 048
     Dates: start: 20120609
  3. CELEBREX [Concomitant]
     Indication: OSTEOARTHRITIS
     Dosage: 200 MG, QD
     Dates: start: 20111020
  4. GABAPENTIN [Concomitant]
     Indication: MULTIPLE SCLEROSIS
     Dosage: 1 DF, TID
     Route: 048
     Dates: start: 20130709
  5. MS CONTIN [Concomitant]
     Indication: PAIN
     Dosage: 1 DF, TID
     Route: 048
     Dates: start: 20101201
  6. NEXIUM//ESOMEPRAZOLE MAGNESIUM [Concomitant]
     Indication: GASTROOESOPHAGEAL REFLUX DISEASE
     Dosage: 1 DF, QD
     Route: 048
     Dates: start: 20120904
  7. SERTRALINE [Concomitant]
     Indication: DEPRESSION
     Dosage: 100 MG, QD
     Route: 048
     Dates: start: 20110613, end: 20131108
  8. OXYCODONE HYDROCHLORIDE [Concomitant]
     Indication: PAIN
     Dosage: 2 DF, Q4H
     Route: 048
     Dates: start: 20101201
  9. SPIRIVA [Concomitant]
     Dosage: 1 DF, QD
     Route: 055
     Dates: start: 20111020, end: 20131212
  10. SUMATRIPTAN SUCCINATE [Concomitant]
     Indication: CLUSTER HEADACHE
     Dosage: 1 DF, PRN
     Dates: start: 20110826, end: 20130827
  11. SYMBICORT [Concomitant]
     Dosage: 2 DF, BID
     Route: 055
     Dates: start: 20111214, end: 20130906
  12. TESTOSTERONE CYPIONATE [Concomitant]
     Dosage: 1 ML, QMO
     Route: 030
     Dates: start: 20130923, end: 20130923
  13. VALIUM [Concomitant]
     Dosage: 1 DF, BID
     Route: 048
     Dates: start: 20101201
  14. CALCIUM 600 + D [Concomitant]
     Dosage: 1 DF, BID
     Route: 048
     Dates: start: 20110915
  15. ALBUTEROL SULFATE [Concomitant]
     Dosage: 1 U, Q4H
     Route: 055
     Dates: start: 20120110, end: 20130116
  16. BUPROPION HCL [Concomitant]
     Dosage: 1 DF, QD
     Route: 048
     Dates: start: 20120904, end: 20130906
  17. FINASTERIDE [Concomitant]
     Dosage: 1 DF, QD
     Route: 048
     Dates: start: 20120217
  18. IPRATROPIUM BROMIDE [Concomitant]
     Dosage: 1 U, Q4H
     Route: 055
     Dates: start: 20120110, end: 20120213
  19. LEVOFLOXACIN [Concomitant]
     Dosage: 500 MG, UNK
     Route: 048
     Dates: start: 20140408
  20. POLYETHYLENE GLYCOL 3350 [Concomitant]
     Dosage: 1 DF, QD
     Route: 048
     Dates: start: 20120110, end: 20131212
  21. PROAIR HFA [Concomitant]
     Dosage: 2 PUFF, Q4H
     Route: 048
  22. PROAIR HFA [Concomitant]
     Dosage: 2 PUFF, Q4H
     Route: 048
     Dates: start: 20120203, end: 20131212
  23. ALLERZIN//PROMETHAZINE HYDROCHLORIDE [Concomitant]
     Indication: NAUSEA
     Dosage: 1 DF, Q4H
  24. ALLERZIN//PROMETHAZINE HYDROCHLORIDE [Concomitant]
     Dosage: 1 DF, Q6H
     Route: 048
     Dates: start: 20140409, end: 20140409
  25. SIMVASTATIN [Concomitant]
     Dosage: 1 DF, QD
     Route: 048
     Dates: start: 20140409, end: 20140409
  26. TAMSULOSIN HCL [Concomitant]
     Dosage: 1 DF, QD
     Route: 048
     Dates: start: 20120120
  27. VIT D [Concomitant]
     Dosage: 1 DF, QD
     Route: 048
     Dates: start: 20131216

REACTIONS (45)
  - Chronic obstructive pulmonary disease [Unknown]
  - Dyspnoea [Recovering/Resolving]
  - Dyspnoea exertional [Recovering/Resolving]
  - Hypoxia [Unknown]
  - Tachypnoea [Unknown]
  - Breath sounds abnormal [Unknown]
  - Pulmonary congestion [Unknown]
  - Oxygen saturation abnormal [Unknown]
  - Emphysema [Unknown]
  - Chest pain [Unknown]
  - Diaphragmatic disorder [Unknown]
  - Cough [Recovered/Resolved]
  - Productive cough [Unknown]
  - Pyrexia [Unknown]
  - Mucosal dryness [Unknown]
  - Rhonchi [Unknown]
  - Rales [Unknown]
  - Wheezing [Unknown]
  - Respiratory distress [Unknown]
  - Pneumonia [Recovered/Resolved]
  - Ventricular hypokinesia [Unknown]
  - Ejection fraction decreased [Unknown]
  - Left atrial dilatation [Unknown]
  - Mitral valve incompetence [Unknown]
  - Ventricular extrasystoles [Unknown]
  - Bundle branch block right [Unknown]
  - White blood cell count increased [Unknown]
  - Red cell distribution width [Unknown]
  - Blood sodium decreased [Unknown]
  - Blood glucose increased [Unknown]
  - Blood chloride decreased [Unknown]
  - Blood calcium decreased [Unknown]
  - Globulins increased [Unknown]
  - Albumin globulin ratio decreased [Unknown]
  - Glomerular filtration rate decreased [Unknown]
  - Blood magnesium decreased [Unknown]
  - Protein total increased [Unknown]
  - Neutrophil percentage increased [Unknown]
  - Monocyte count increased [Unknown]
  - Carbon dioxide increased [Unknown]
  - Lymphocyte count decreased [Recovering/Resolving]
  - Blood pressure increased [Unknown]
  - Dizziness [Unknown]
  - Lymphadenopathy mediastinal [Not Recovered/Not Resolved]
  - Pulmonary mass [Unknown]
